FAERS Safety Report 11087374 (Version 3)
Quarter: 2015Q3

REPORT INFORMATION
  Report Type: Spontaneous
  Country: JP (occurrence: JP)
  Receive Date: 20150504
  Receipt Date: 20150702
  Transmission Date: 20151125
  Serious: Yes (Death, Hospitalization)
  Sender: FDA-Public Use
  Company Number: JP-BAYER-2015-135326

PATIENT
  Age: 40 Year
  Sex: Male
  Weight: 50 kg

DRUGS (6)
  1. NEXAVAR [Suspect]
     Active Substance: SORAFENIB
     Indication: PULMONARY HYPERTENSION
  2. TRACLEER [Concomitant]
     Active Substance: BOSENTAN
     Dosage: DAILY DOSE 250 MG
     Route: 048
     Dates: start: 200608
  3. FLOLAN [Concomitant]
     Active Substance: EPOPROSTENOL SODIUM
     Dosage: UNK
     Route: 042
     Dates: start: 20120627
  4. REVATIO [Concomitant]
     Active Substance: SILDENAFIL CITRATE
     Dosage: DAILY DOSE 60 MG
     Route: 048
     Dates: start: 200707
  5. ADCIRCA [Concomitant]
     Active Substance: TADALAFIL
     Dosage: UNK
     Route: 048
     Dates: start: 20141020
  6. NEXAVAR [Suspect]
     Active Substance: SORAFENIB
     Indication: RIGHT VENTRICULAR FAILURE
     Dosage: 200 MG DAILY
     Route: 048
     Dates: start: 20150217, end: 20150412

REACTIONS (3)
  - Right ventricular failure [Fatal]
  - Renal impairment [Fatal]
  - Off label use [None]

NARRATIVE: CASE EVENT DATE: 20150309
